FAERS Safety Report 5142173-1 (Version None)
Quarter: 2006Q4

REPORT INFORMATION
  Report Type: 
  Country: None (occurrence: None)
  Receive Date: 20061102
  Receipt Date: 20060804
  Transmission Date: 20070319
  Serious: Yes (Hospitalization)
  Sender: FDA-Public Use
  Company Number: BR-AVENTIS-200618222GDDC

PATIENT
  Age: 13 Year
  Sex: Male
  Weight: 30 kg

DRUGS (6)
  1. LANTUS [Suspect]
     Indication: DIABETES MELLITUS
     Route: 058
     Dates: start: 20060201, end: 20060601
  2. LANTUS [Suspect]
     Route: 058
     Dates: start: 20060601
  3. LANTUS [Suspect]
     Dosage: DOSE: UNK
     Route: 058
  4. LANTUS [Suspect]
     Route: 058
  5. OPTIPEN (INSULIN PUMP) [Suspect]
  6. NOVORAPID [Concomitant]
     Dosage: FREQUENCY: AFTER MEALS
     Dates: start: 20060201

REACTIONS (3)
  - DIABETIC KETOACIDOSIS [None]
  - HYPERGLYCAEMIA [None]
  - PHARMACEUTICAL PRODUCT COMPLAINT [None]
